FAERS Safety Report 6701006-X (Version None)
Quarter: 2010Q2

REPORT INFORMATION
  Report Type: 
  Country: None (occurrence: None)
  Receive Date: 20100428
  Receipt Date: 20100419
  Transmission Date: 20101027
  Serious: Yes (Other)
  Sender: FDA-Public Use
  Company Number: US-SANOFI-AVENTIS-2010SA003959

PATIENT
  Age: 76 Year
  Sex: Male
  Weight: 79 kg

DRUGS (20)
  1. LANTUS [Suspect]
     Indication: TYPE 2 DIABETES MELLITUS
     Dosage: DOSE:18 UNIT(S)
     Route: 058
     Dates: start: 20030707
  2. OPTICLICK [Suspect]
     Indication: TYPE 2 DIABETES MELLITUS
  3. COREG [Concomitant]
  4. ALLOPURINOL [Concomitant]
  5. LOTREL [Concomitant]
     Route: 048
  6. PLAVIX [Concomitant]
     Route: 048
  7. JANUVIA [Concomitant]
     Route: 048
  8. DIGOXIN [Concomitant]
  9. SIMVASTATIN [Concomitant]
     Route: 048
     Dates: end: 20091105
  10. ASPIRIN [Concomitant]
     Route: 048
  11. DOXAZOSIN MESILATE [Concomitant]
  12. HYDROCHLOROTHIAZIDE [Concomitant]
  13. EVENING PRIMROSE OIL [Concomitant]
  14. ALPHA LIPOIC ACID [Concomitant]
  15. VITAMIN B1 TAB [Concomitant]
  16. VITAMIN B-12 [Concomitant]
  17. VITAMIN B6 [Concomitant]
  18. VITAMIN C [Concomitant]
  19. SAW PALMETTO [Concomitant]
  20. CHONDROITIN W/GLUCOSAMINE [Concomitant]
     Dosage: 500 MG OF GLUCOSAMINE WITH CHONDROITIN 400 (ONE CAPSULE DAILY)

REACTIONS (8)
  - CARDIAC PACEMAKER INSERTION [None]
  - CAROTID ARTERY OCCLUSION [None]
  - DIPLOPIA [None]
  - DISORIENTATION [None]
  - IRITIS [None]
  - NAUSEA [None]
  - PHOTOPHOBIA [None]
  - VISION BLURRED [None]
